FAERS Safety Report 9514085 (Version 2)
Quarter: 2013Q3

REPORT INFORMATION
  Report Type: Spontaneous
  Country: None (occurrence: JP)
  Receive Date: 20130910
  Receipt Date: 20130910
  Transmission Date: 20140515
  Serious: Yes (Hospitalization)
  Sender: FDA-Public Use
  Company Number: JP-ABBOTT-00P-087-0101201-00

PATIENT
  Age: 40 Year
  Sex: Male

DRUGS (23)
  1. NORVIR [Suspect]
     Indication: HIV INFECTION
     Route: 048
     Dates: start: 19990609, end: 19990612
  2. NORVIR [Suspect]
     Route: 048
     Dates: start: 19990619, end: 20000120
  3. NORVIR [Suspect]
     Route: 048
     Dates: start: 20000613, end: 20011115
  4. KALETRA SOFT GELATIN CAPSULES [Suspect]
     Indication: HIV INFECTION
     Route: 048
     Dates: start: 20011116
  5. STAVUDINE [Suspect]
     Indication: HIV INFECTION
     Route: 048
     Dates: start: 19990518, end: 19990521
  6. STAVUDINE [Suspect]
     Route: 048
     Dates: start: 19990609, end: 19990612
  7. STAVUDINE [Suspect]
     Route: 048
     Dates: start: 19990619, end: 20000120
  8. STAVUDINE [Suspect]
     Route: 048
     Dates: start: 20000613
  9. LAMIVUDINE [Suspect]
     Indication: HIV INFECTION
     Route: 048
     Dates: start: 19981101, end: 19981118
  10. LAMIVUDINE [Suspect]
     Route: 048
     Dates: start: 19990518, end: 19990521
  11. LAMIVUDINE [Suspect]
     Route: 048
     Dates: start: 19990609, end: 19990612
  12. LAMIVUDINE [Suspect]
     Route: 048
     Dates: start: 19990619, end: 20000120
  13. LAMIVUDINE [Suspect]
     Route: 048
     Dates: start: 20000613
  14. SAQUINAVIR [Suspect]
     Indication: HIV INFECTION
     Route: 048
     Dates: start: 19990609, end: 19990612
  15. SAQUINAVIR [Suspect]
     Route: 048
     Dates: start: 19990619, end: 20000120
  16. SAQUINAVIR [Suspect]
     Route: 048
     Dates: start: 20000523, end: 20000613
  17. SAQUINAVIR [Suspect]
     Route: 048
     Dates: start: 20000829
  18. GANCICLOVIR [Concomitant]
     Indication: CYTOMEGALOVIRUS CHORIORETINITIS
     Route: 042
     Dates: start: 20000603, end: 20000616
  19. GANCICLOVIR [Concomitant]
     Route: 048
     Dates: start: 20000617, end: 20000629
  20. SULFAMETHOXAZOLE W/TRIMETHOPRIM [Concomitant]
     Indication: ANTIFUNGAL PROPHYLAXIS
     Dates: start: 20000525, end: 20020509
  21. FLUCONAZOLE [Concomitant]
     Indication: ORAL CANDIDIASIS
     Dates: start: 20000612, end: 20000619
  22. FLUCONAZOLE [Concomitant]
     Dates: start: 20000824, end: 20000830
  23. FLUCONAZOLE [Concomitant]
     Dates: start: 20000922, end: 20000928

REACTIONS (12)
  - Retinal detachment [Recovering/Resolving]
  - Retinopathy proliferative [Recovering/Resolving]
  - Glaucoma [Recovering/Resolving]
  - Cerebral infarction [Recovering/Resolving]
  - Ulcerative keratitis [Not Recovered/Not Resolved]
  - Insomnia [Recovered/Resolved]
  - Dizziness [Not Recovered/Not Resolved]
  - Staphylococcal infection [Unknown]
  - Hypertriglyceridaemia [Recovering/Resolving]
  - Urinary sediment abnormal [Not Recovered/Not Resolved]
  - Nausea [Recovered/Resolved]
  - Vomiting [Recovered/Resolved]
